FAERS Safety Report 10077112 (Version 1)
Quarter: 2014Q2

REPORT INFORMATION
  Report Type: Spontaneous
  Country: FR (occurrence: FR)
  Receive Date: 20140414
  Receipt Date: 20140414
  Transmission Date: 20141212
  Serious: Yes (Hospitalization)
  Sender: FDA-Public Use
  Company Number: PHHY2014FR044742

PATIENT
  Age: 70 Year
  Sex: Female

DRUGS (5)
  1. ESIDREX [Suspect]
     Indication: HYPERTENSION
     Dosage: 25 MG, QD
     Route: 048
  2. KAYEXALATE [Interacting]
     Indication: HYPERKALAEMIA
     Dosage: UNK UKN, UNK
     Route: 048
     Dates: start: 20140226, end: 20140311
  3. AMLOR [Concomitant]
     Indication: HYPERTENSION
     Dosage: 5 MG, UNK
  4. TENORMINE [Concomitant]
     Indication: HYPERTENSION
  5. GARDENAL [Concomitant]

REACTIONS (1)
  - Hypokalaemia [Recovered/Resolved]
